FAERS Safety Report 14588924 (Version 3)
Quarter: 2018Q1

REPORT INFORMATION
  Report Type: Spontaneous
  Country: US (occurrence: US)
  Receive Date: 20180301
  Receipt Date: 20180327
  Transmission Date: 20180509
  Serious: Yes (Other)
  Sender: FDA-Public Use
  Company Number: US-ALLERGAN-1811043US

PATIENT
  Age: 55 Year
  Sex: Female
  Weight: 63 kg

DRUGS (6)
  1. URSODEOXYCHOLIC ACID UNK [Suspect]
     Active Substance: URSODIOL
     Dosage: 23 MG/KG/DAY
     Route: 048
  2. CALCIUM [Concomitant]
     Active Substance: CALCIUM
     Indication: PRIMARY BILIARY CHOLANGITIS
     Dosage: 1000 MG, UNK
     Route: 065
     Dates: start: 20160801
  3. URSODEOXYCHOLIC ACID UNK [Suspect]
     Active Substance: URSODIOL
     Indication: CHOLANGITIS
     Dosage: 15 MG/KG/DAY
     Route: 048
  4. URSODEOXYCHOLIC ACID UNK [Suspect]
     Active Substance: URSODIOL
     Dosage: 1500 MG, QD
     Route: 048
  5. OBETICHOLIC ACID [Suspect]
     Active Substance: OBETICHOLIC ACID
     Indication: PRIMARY BILIARY CHOLANGITIS
     Dosage: 5 MG, QD
     Route: 048
     Dates: start: 20160801
  6. LEVOTHYROXINE. [Concomitant]
     Active Substance: LEVOTHYROXINE
     Indication: PRIMARY BILIARY CHOLANGITIS
     Dosage: 88 MG, UNK
     Route: 065
     Dates: start: 20160801

REACTIONS (3)
  - Hepatitis cholestatic [Recovered/Resolved]
  - Jaundice [Recovering/Resolving]
  - Withdrawal syndrome [Recovering/Resolving]
